FAERS Safety Report 7290948-5 (Version None)
Quarter: 2011Q1

REPORT INFORMATION
  Report Type: 
  Country: None (occurrence: None)
  Receive Date: 20110214
  Receipt Date: 20110204
  Transmission Date: 20110831
  Serious: Yes (Other)
  Sender: FDA-Public Use
  Company Number: BE-BRISTOL-MYERS SQUIBB COMPANY-14772362

PATIENT
  Age: 46 Year
  Sex: Male

DRUGS (3)
  1. GLUCOCORTICOID [Suspect]
     Indication: SYSTEMIC LUPUS ERYTHEMATOSUS
  2. MYCOPHENOLATE MOFETIL [Suspect]
     Indication: SYSTEMIC LUPUS ERYTHEMATOSUS
  3. ABATACEPT [Suspect]
     Indication: SYSTEMIC LUPUS ERYTHEMATOSUS
     Dosage: 14AUG09
     Route: 042
     Dates: start: 20090129, end: 20090911

REACTIONS (1)
  - KAPOSI'S SARCOMA [None]
